FAERS Safety Report 4333848-2 (Version None)
Quarter: 2004Q2

REPORT INFORMATION
  Report Type: 
  Country: None (occurrence: None)
  Receive Date: 20040402
  Receipt Date: 20040322
  Transmission Date: 20050107
  Serious: Yes (Hospitalization, Other)
  Sender: FDA-Public Use
  Company Number: HQWYE029823MAR04

PATIENT
  Age: 81 Year
  Sex: Male
  Weight: 75 kg

DRUGS (3)
  1. MYLOTARG [Suspect]
     Indication: ACUTE MYELOID LEUKAEMIA
     Dosage: 16.8 MG 1X PER 1 DAY, INTRAVENOUS
     Route: 042
     Dates: start: 20040205, end: 20040205
  2. MYLOTARG [Suspect]
     Indication: ACUTE MYELOID LEUKAEMIA
     Dosage: 16.8 MG 1X PER 1 DAY, INTRAVENOUS
     Route: 042
     Dates: start: 20040219, end: 20040219
  3. NEUPOGEN [Concomitant]

REACTIONS (2)
  - ALPHA HAEMOLYTIC STREPTOCOCCAL INFECTION [None]
  - FEBRILE NEUTROPENIA [None]
